FAERS Safety Report 4558805-2 (Version None)
Quarter: 2005Q1

REPORT INFORMATION
  Report Type: 
  Country: None (occurrence: None)
  Receive Date: 20050121
  Receipt Date: 20050111
  Transmission Date: 20050727
  Serious: Yes (Hospitalization)
  Sender: FDA-Public Use
  Company Number: JP-GLAXOSMITHKLINE-B0364288A

PATIENT
  Age: 1 Year
  Sex: Female
  Weight: 8.5 kg

DRUGS (3)
  1. ZOVIRAX [Suspect]
     Indication: VARICELLA
     Dosage: .4G FOUR TIMES PER DAY
     Route: 048
     Dates: start: 20050105, end: 20050105
  2. POLARAMINE [Concomitant]
     Indication: VARICELLA
     Route: 048
     Dates: start: 20050105, end: 20050105
  3. SIMPLE SYRUP [Concomitant]
     Indication: VARICELLA
     Route: 048
     Dates: start: 20050105, end: 20050105

REACTIONS (7)
  - BLISTER [None]
  - BODY TEMPERATURE INCREASED [None]
  - CONJUNCTIVAL HYPERAEMIA [None]
  - ERYTHEMA [None]
  - FACE OEDEMA [None]
  - GENERALISED ERYTHEMA [None]
  - URTICARIA GENERALISED [None]
